FAERS Safety Report 7433167-1 (Version None)
Quarter: 2011Q2

REPORT INFORMATION
  Report Type: 
  Country: None (occurrence: None)
  Receive Date: 20110415
  Receipt Date: 20110405
  Transmission Date: 20111010
  Serious: Yes (Other)
  Sender: FDA-Public Use
  Company Number: FK201100637

PATIENT
  Age: 62 Year
  Sex: Female

DRUGS (4)
  1. CLADRIBINE (CLADRIBINE) (CLADRIBINE) [Concomitant]
  2. CYCLOPHOSPHAMIDE (CYCLOPHOASPHAMIDE) (CYCLOPHOSPHAMIDE) [Concomitant]
  3. METHOTREXATE [Suspect]
     Indication: RHEUMATOID ARTHRITIS
     Dosage: 4 MG, 1 IN 1 WK
  4. PREDNISOLONE [Concomitant]

REACTIONS (11)
  - LIVER TENDERNESS [None]
  - HEPATOSPLENOMEGALY [None]
  - CRYOGLOBULINAEMIA [None]
  - TENDERNESS [None]
  - BLINDNESS [None]
  - LYMPHOPROLIFERATIVE DISORDER [None]
  - VERTIGO [None]
  - WALDENSTROM'S MACROGLOBULINAEMIA [None]
  - HEADACHE [None]
  - SPLEEN DISORDER [None]
  - PLEURAL EFFUSION [None]
